FAERS Safety Report 10062681 (Version 1)
Quarter: 2014Q1

REPORT INFORMATION
  Report Type: Spontaneous
  Country: US (occurrence: None)
  Receive Date: 20140313
  Receipt Date: 20140313
  Transmission Date: 20141002
  Serious: No
  Sender: FDA-Public Use
  Company Number: 1000050763

PATIENT
  Age: 70 Year
  Sex: Female
  Weight: 58 kg

DRUGS (6)
  1. DALIRESP (ROFLUMILAST) (500 MICROGRAM, TABLETS) [Suspect]
     Indication: CHRONIC OBSTRUCTIVE PULMONARY DISEASE
     Dosage: 500 MCG (500 MCG, 1 IN 1D), ORAL
     Route: 048
     Dates: start: 201308, end: 201309
  2. DALIRESP (ROFLUMILAST) (500 MICROGRAM, TABLETS) [Suspect]
     Indication: CHRONIC OBSTRUCTIVE PULMONARY DISEASE
     Route: 048
     Dates: start: 20131018, end: 20131025
  3. LASIX (FUROSEMIDE) [Suspect]
     Dates: end: 201310
  4. PANTOPRAZOLE (PANTOPRAZOLE) [Concomitant]
  5. SPIRIVA (TIOTROPIUM BROMIDE) [Concomitant]
  6. SYMBICORT (BUDESONIDE W/FORMOTEROL FUMARATE) [Suspect]

REACTIONS (5)
  - Nausea [None]
  - Decreased appetite [None]
  - Weight decreased [None]
  - Dizziness [None]
  - Diarrhoea [None]
